FAERS Safety Report 5431319-3 (Version None)
Quarter: 2007Q3

REPORT INFORMATION
  Report Type: 
  Country: None (occurrence: None)
  Receive Date: 20070830
  Receipt Date: 20070418
  Transmission Date: 20080115
  Serious: No
  Sender: FDA-Public Use
  Company Number: A0647804A

PATIENT
  Age: 57 Year
  Sex: Female

DRUGS (5)
  1. WELLBUTRIN XL [Suspect]
     Indication: DEPRESSION
     Dosage: 150MG PER DAY
     Route: 048
     Dates: start: 20070413
  2. MULTIVITAMIN [Concomitant]
  3. FLU-CURE [Concomitant]
  4. UNKNOWN MEDICATION [Concomitant]
  5. ZICAM [Concomitant]

REACTIONS (2)
  - INFLUENZA [None]
  - TINNITUS [None]
